FAERS Safety Report 4765501-5 (Version None)
Quarter: 2005Q3

REPORT INFORMATION
  Report Type: 
  Country: None (occurrence: None)
  Receive Date: 20050912
  Receipt Date: 20050901
  Transmission Date: 20060218
  Serious: Yes (Hospitalization)
  Sender: FDA-Public Use
  Company Number: US-JNJFOC-20050900246

PATIENT
  Sex: Male
  Weight: 83.92 kg

DRUGS (20)
  1. INFLIXIMAB [Suspect]
     Indication: RHEUMATOID ARTHRITIS
     Route: 042
  2. ATENOLOL [Concomitant]
  3. DICLOFENAC [Concomitant]
  4. ECOTRIN [Concomitant]
  5. FERROUS SULFATE [Concomitant]
  6. GLUCOSAMINE [Concomitant]
  7. ISOSORBIDE [Concomitant]
  8. METHOTREXATE [Concomitant]
  9. PLAVIX [Concomitant]
  10. PREDNISONE TAB [Concomitant]
  11. PREVACID [Concomitant]
  12. LIPITOR [Concomitant]
  13. MULTI-VITAMINS [Concomitant]
  14. MULTI-VITAMINS [Concomitant]
  15. MULTI-VITAMINS [Concomitant]
  16. MULTI-VITAMINS [Concomitant]
  17. MULTI-VITAMINS [Concomitant]
  18. MULTI-VITAMINS [Concomitant]
  19. MULTI-VITAMINS [Concomitant]
  20. MULTI-VITAMINS [Concomitant]

REACTIONS (3)
  - BUNDLE BRANCH BLOCK LEFT [None]
  - SYNCOPE [None]
  - VENTRICULAR TACHYCARDIA [None]
